FAERS Safety Report 7275015-9 (Version None)
Quarter: 2011Q1

REPORT INFORMATION
  Report Type: 
  Country: None (occurrence: None)
  Receive Date: 20110204
  Receipt Date: 20110128
  Transmission Date: 20110831
  Serious: Yes (Hospitalization, Other)
  Sender: FDA-Public Use
  Company Number: US-ROCHE-720495

PATIENT
  Sex: Male

DRUGS (5)
  1. RIBAVIRIN [Suspect]
     Indication: HEPATITIS C
     Dosage: OTHER INDICATION: HIV
     Route: 065
     Dates: start: 20100502, end: 20101223
  2. RIBAVIRIN [Suspect]
     Dosage: WEEK 36 OF TREATMENT
     Route: 065
     Dates: start: 20101225
  3. PEGINTERFERON ALFA-2A [Suspect]
     Indication: HEPATITIS C
     Dosage: OTHER INDICATION: HIV
     Route: 065
     Dates: start: 20100502
  4. PEGINTERFERON ALFA-2A [Suspect]
     Route: 065
     Dates: start: 20100530, end: 20101223
  5. PEGINTERFERON ALFA-2A [Suspect]
     Dosage: WEEK 36 OF TREATMENT
     Route: 065
     Dates: start: 20101225

REACTIONS (8)
  - BILE DUCT OBSTRUCTION [None]
  - RASH MACULAR [None]
  - STAPHYLOCOCCAL INFECTION [None]
  - NEUTROPHIL COUNT DECREASED [None]
  - ABDOMINAL DISTENSION [None]
  - BLOOD BILIRUBIN INCREASED [None]
  - WHITE BLOOD CELL COUNT DECREASED [None]
  - RASH PRURITIC [None]
